FAERS Safety Report 21992524 (Version 1)
Quarter: 2023Q1

REPORT INFORMATION
  Report Type: Spontaneous
  Country: US (occurrence: US)
  Receive Date: 20230215
  Receipt Date: 20230215
  Transmission Date: 20230417
  Serious: No
  Sender: FDA-Public Use
  Company Number: US-PERRIGO-22US014225

PATIENT
  Age: 52 Year
  Sex: Female
  Weight: 69.39 kg

DRUGS (2)
  1. OMEPRAZOLE [Suspect]
     Active Substance: OMEPRAZOLE
     Indication: Dyspepsia
     Dosage: 40 MG, SINGLE
     Route: 048
     Dates: start: 20221025, end: 20221025
  2. MOTILIUM [Concomitant]
     Active Substance: DOMPERIDONE
     Indication: Impaired gastric emptying
     Dosage: UNK
     Route: 065
     Dates: start: 2009

REACTIONS (2)
  - Dysgeusia [Recovered/Resolved]
  - Extra dose administered [Recovered/Resolved]

NARRATIVE: CASE EVENT DATE: 20221025
